FAERS Safety Report 19240275 (Version 1)
Quarter: 2021Q2

REPORT INFORMATION
  Report Type: Spontaneous
  Country: US (occurrence: US)
  Receive Date: 20210511
  Receipt Date: 20210511
  Transmission Date: 20210717
  Serious: No
  Sender: FDA-Public Use
  Company Number: US-SA-2021SA153073

PATIENT
  Sex: Female

DRUGS (11)
  1. TRIAMCINOLONE ACETONIDE. [Concomitant]
     Active Substance: TRIAMCINOLONE ACETONIDE
  2. TYLENOL [Concomitant]
     Active Substance: ACETAMINOPHEN
  3. METHYLPREDNISOLONE. [Concomitant]
     Active Substance: METHYLPREDNISOLONE
  4. SINGULAIR [Concomitant]
     Active Substance: MONTELUKAST SODIUM
  5. HYDROXYZINE HCL [Concomitant]
     Active Substance: HYDROXYZINE HYDROCHLORIDE
  6. DUPIXENT [Suspect]
     Active Substance: DUPILUMAB
     Indication: DERMATITIS ATOPIC
     Dosage: 300 MG, QOW
     Route: 058
     Dates: start: 202101
  7. APRISO [Concomitant]
     Active Substance: MESALAMINE
  8. GABAPENTIN. [Concomitant]
     Active Substance: GABAPENTIN
  9. ALBUTEROL SULFATE HFA [Concomitant]
     Active Substance: ALBUTEROL SULFATE
  10. MESALAMINE. [Concomitant]
     Active Substance: MESALAMINE
  11. ORPHENADRINE CITRATE. [Concomitant]
     Active Substance: ORPHENADRINE CITRATE

REACTIONS (4)
  - Dry skin [Unknown]
  - Carpal tunnel syndrome [Unknown]
  - Pruritus [Unknown]
  - Neck pain [Unknown]
